FAERS Safety Report 7236089-4 (Version None)
Quarter: 2011Q1

REPORT INFORMATION
  Report Type: 
  Country: None (occurrence: None)
  Receive Date: 20110120
  Receipt Date: 20110112
  Transmission Date: 20110831
  Serious: Yes (Death, Other)
  Sender: FDA-Public Use
  Company Number: JP-AMGEN-JPNCT2011003487

PATIENT

DRUGS (2)
  1. PANITUMUMAB [Suspect]
     Indication: COLORECTAL CANCER
     Dosage: UNK UNK, Q2WK
     Route: 041
     Dates: start: 20100907
  2. TOPOTECAN [Concomitant]
     Indication: COLORECTAL CANCER
     Route: 041
     Dates: start: 20100907

REACTIONS (2)
  - PNEUMONIA [None]
  - CEREBRAL INFARCTION [None]
